FAERS Safety Report 16445930 (Version 2)
Quarter: 2019Q3

REPORT INFORMATION
  Report Type: Spontaneous
  Country: US (occurrence: US)
  Receive Date: 20190618
  Receipt Date: 20190729
  Transmission Date: 20191004
  Serious: Yes (Other)
  Sender: FDA-Public Use
  Company Number: US-PFIZER INC-2019259239

PATIENT
  Age: 77 Year
  Sex: Female

DRUGS (1)
  1. EXEMESTANE. [Suspect]
     Active Substance: EXEMESTANE
     Dosage: UNK
     Dates: start: 20120731, end: 20180717

REACTIONS (6)
  - Neoplasm progression [Unknown]
  - Progressive multiple sclerosis [Unknown]
  - Dyspnoea [Unknown]
  - Stomatitis [Unknown]
  - Pulmonary mass [Unknown]
  - Osteolysis [Unknown]

NARRATIVE: CASE EVENT DATE: 2012
